FAERS Safety Report 6183319-6 (Version None)
Quarter: 2009Q2

REPORT INFORMATION
  Report Type: 
  Country: None (occurrence: None)
  Receive Date: 20090507
  Receipt Date: 20090427
  Transmission Date: 20091009
  Serious: Yes (Hospitalization)
  Sender: FDA-Public Use
  Company Number: HK-BAXTER-2008BH001568

PATIENT
  Age: 21 Month
  Sex: Female
  Weight: 10 kg

DRUGS (2)
  1. DEXTROSE 5% AND SODIUM CHLORIDE 0.2% IN PLASTIC CONTAINER [Suspect]
     Indication: FLUID REPLACEMENT
     Route: 042
     Dates: start: 20080213, end: 20080213
  2. ACETAMINOPHEN [Concomitant]
     Indication: PYREXIA
     Route: 048
     Dates: start: 20080213

REACTIONS (2)
  - INJECTION SITE CELLULITIS [None]
  - INJECTION SITE HAEMORRHAGE [None]
